FAERS Safety Report 11107930 (Version 3)
Quarter: 2016Q4

REPORT INFORMATION
  Report Type: Report from Study
  Country: JP (occurrence: JP)
  Receive Date: 20150512
  Receipt Date: 20161205
  Transmission Date: 20170206
  Serious: Yes (Death, Hospitalization)
  Sender: FDA-Public Use
  Company Number: JP-EISAI MEDICAL RESEARCH-EC-2015-006634

PATIENT
  Age: 47 Year
  Sex: Female
  Weight: 43 kg

DRUGS (2)
  1. HALAVEN [Suspect]
     Active Substance: ERIBULIN MESYLATE
     Route: 041
     Dates: start: 20141125, end: 20150317
  2. HALAVEN [Suspect]
     Active Substance: ERIBULIN MESYLATE
     Indication: INVASIVE DUCTAL BREAST CARCINOMA
     Route: 041
     Dates: start: 20141028, end: 20141028

REACTIONS (3)
  - Febrile neutropenia [Recovered/Resolved]
  - Leukopenia [Recovered/Resolved]
  - Malignant pleural effusion [Fatal]

NARRATIVE: CASE EVENT DATE: 20141104
